FAERS Safety Report 8871200 (Version 1)
Quarter: 2012Q4

REPORT INFORMATION
  Report Type: 
  Country: US (occurrence: US)
  Receive Date: 20121026
  Receipt Date: 20121026
  Transmission Date: 20130627
  Serious: No
  Sender: FDA-Public Use
  Company Number: US-AMGEN-USASP2012042294

PATIENT
  Age: 54 Year
  Sex: Female
  Weight: 83 kg

DRUGS (13)
  1. ENBREL [Suspect]
     Indication: PRODUCT USED FOR UNKNOWN INDICATION
     Dosage: 50 mg, qwk
     Route: 058
  2. KLONOPIN [Concomitant]
     Dosage: 1 mg, UNK
  3. NEXIUM                             /01479302/ [Concomitant]
     Dosage: 40 mg, UNK
  4. CELEXA                             /00582602/ [Concomitant]
     Dosage: 20 mg, UNK
  5. KELP                               /01214901/ [Concomitant]
     Dosage: UNK
  6. ACIDOPHILUS [Concomitant]
     Dosage: UNK
  7. ALEVE [Concomitant]
     Dosage: 220 mg, UNK
  8. ZINC [Concomitant]
     Dosage: 30 mg, UNK
  9. MULTIVITAMIN                       /00097801/ [Concomitant]
     Dosage: UNK
  10. CALCIUM D                          /00944201/ [Concomitant]
     Dosage: UNK
  11. IBUPROFEN [Concomitant]
     Dosage: 200 mg, UNK
  12. BROMELAIN [Concomitant]
     Dosage: 500 mg, UNK
  13. GLUCOSAMINE + CHONDROITIN          /01430901/ [Concomitant]
     Dosage: UNK

REACTIONS (2)
  - Fatigue [Unknown]
  - Hypersomnia [Unknown]
